FAERS Safety Report 7178499-X (Version None)
Quarter: 2010Q4

REPORT INFORMATION
  Report Type: 
  Country: None (occurrence: None)
  Receive Date: 20101220
  Receipt Date: 20101210
  Transmission Date: 20110411
  Serious: Yes (Other)
  Sender: FDA-Public Use
  Company Number: US-AMGEN-USASP2010009459

PATIENT

DRUGS (1)
  1. PROCRIT [Suspect]
     Indication: RENAL FAILURE CHRONIC
     Dosage: 30000 IU, 3 TIMES/WK
     Route: 058
     Dates: start: 19990101, end: 20101101

REACTIONS (3)
  - DEEP VEIN THROMBOSIS [None]
  - DRUG SPECIFIC ANTIBODY PRESENT [None]
  - PULMONARY EMBOLISM [None]
